FAERS Safety Report 10897189 (Version 2)
Quarter: 2015Q2

REPORT INFORMATION
  Report Type: Spontaneous
  Country: US (occurrence: US)
  Receive Date: 20150309
  Receipt Date: 20150415
  Transmission Date: 20150821
  Serious: No
  Sender: FDA-Public Use
  Company Number: US-PFIZER INC-2015080456

PATIENT
  Age: 69 Year
  Sex: Female

DRUGS (1)
  1. LYRICA [Suspect]
     Active Substance: PREGABALIN
     Dosage: 10 MG, 3X/DAY
     Dates: start: 2010

REACTIONS (2)
  - Scoliosis [Not Recovered/Not Resolved]
  - Disease progression [Not Recovered/Not Resolved]
